FAERS Safety Report 7523652-6 (Version None)
Quarter: 2011Q2

REPORT INFORMATION
  Report Type: 
  Country: None (occurrence: None)
  Receive Date: 20110601
  Receipt Date: 20110601
  Transmission Date: 20111010
  Serious: No
  Sender: FDA-Public Use
  Company Number: None

PATIENT
  Age: 84 Year
  Sex: Male
  Weight: 104.2 kg

DRUGS (1)
  1. DRONEDARONE HCL [Suspect]
     Indication: ATRIAL FIBRILLATION
     Dosage: 400 MG BID PO
     Route: 048
     Dates: start: 20091211, end: 20100112

REACTIONS (2)
  - CARDIAC FAILURE CONGESTIVE [None]
  - CONDITION AGGRAVATED [None]
